FAERS Safety Report 16316531 (Version 13)
Quarter: 2020Q2

REPORT INFORMATION
  Report Type: Report from Study
  Country: CH (occurrence: CH)
  Receive Date: 20190515
  Receipt Date: 20200414
  Transmission Date: 20200713
  Serious: Yes (Hospitalization)
  Sender: FDA-Public Use
  Company Number: CH-EISAI MEDICAL RESEARCH-EC-2019-056335

PATIENT
  Age: 58 Year
  Sex: Female
  Weight: 96 kg

DRUGS (14)
  1. LENVATINIB [Suspect]
     Active Substance: LENVATINIB
     Indication: NON-SMALL CELL LUNG CANCER
     Dosage: STARTING DOSE AT 20 MILLIGRAM, QD. FLUCTUATED DOSAGE
     Route: 048
     Dates: start: 20190220, end: 20190430
  2. SPIROCORT [Concomitant]
     Active Substance: BUDESONIDE
     Dates: start: 20190426, end: 20190430
  3. PANTOPRAZOLE [Concomitant]
     Active Substance: PANTOPRAZOLE
     Dates: start: 20190403
  4. ALBUTEROL. [Concomitant]
     Active Substance: ALBUTEROL
     Dates: start: 20180511
  5. LENVATINIB [Suspect]
     Active Substance: LENVATINIB
     Route: 048
     Dates: start: 20190501, end: 20190508
  6. ATROVENT [Concomitant]
     Active Substance: IPRATROPIUM BROMIDE
     Dates: start: 20180511, end: 20190425
  7. ZOLPIDEM [Concomitant]
     Active Substance: ZOLPIDEM TARTRATE
     Dates: start: 20190408
  8. SPIROCORT [Concomitant]
     Active Substance: BUDESONIDE
     Route: 048
     Dates: start: 20190417, end: 20190425
  9. IMODIUM [Concomitant]
     Active Substance: LOPERAMIDE HYDROCHLORIDE
     Dates: start: 20190327
  10. ACETAMINOPHEN. [Concomitant]
     Active Substance: ACETAMINOPHEN
     Dates: start: 20181207
  11. PEMBROLIZUMAB. [Suspect]
     Active Substance: PEMBROLIZUMAB
     Indication: NON-SMALL CELL LUNG CANCER
     Route: 041
     Dates: start: 20190220, end: 20190313
  12. PEMBROLIZUMAB. [Suspect]
     Active Substance: PEMBROLIZUMAB
     Route: 041
     Dates: start: 20190501, end: 20190501
  13. SPIROCORT [Concomitant]
     Active Substance: BUDESONIDE
     Dates: start: 20190501, end: 20190509
  14. MINALGIN [Concomitant]
     Active Substance: METAMIZOLE
     Dates: start: 20180511, end: 20190709

REACTIONS (1)
  - Diverticular perforation [Recovered/Resolved]

NARRATIVE: CASE EVENT DATE: 20190509
